FAERS Safety Report 15957925 (Version 3)
Quarter: 2019Q1

REPORT INFORMATION
  Report Type: Report from Study
  Country: US (occurrence: US)
  Receive Date: 20190213
  Receipt Date: 20190311
  Transmission Date: 20190417
  Serious: Yes (Death, Hospitalization, Other)
  Sender: FDA-Public Use
  Company Number: US-ACTELION-A-NJ2019-186174

PATIENT
  Age: 46 Year
  Sex: Female
  Weight: 61.22 kg

DRUGS (5)
  1. UPTRAVI [Suspect]
     Active Substance: SELEXIPAG
     Indication: PULMONARY ARTERIAL HYPERTENSION
     Dosage: 600 MCG, QAM / 800 MCG QPM
     Route: 048
  2. TYVASO [Concomitant]
     Active Substance: TREPROSTINIL
  3. LASIX [Concomitant]
     Active Substance: FUROSEMIDE
  4. OPSUMIT [Suspect]
     Active Substance: MACITENTAN
     Indication: PULMONARY ARTERIAL HYPERTENSION
     Dosage: 10 MG, QD
     Route: 048
     Dates: start: 20180908, end: 20190228
  5. REVATIO [Concomitant]
     Active Substance: SILDENAFIL CITRATE

REACTIONS (9)
  - Pneumonia [Unknown]
  - Death [Fatal]
  - Muscular weakness [Unknown]
  - Glioblastoma [Unknown]
  - Pyrexia [Unknown]
  - Adverse event [Unknown]
  - Hemiplegia [Unknown]
  - Oedema [Unknown]
  - Dehydration [Unknown]

NARRATIVE: CASE EVENT DATE: 20190228
